FAERS Safety Report 13227695 (Version 1)
Quarter: 2017Q1

REPORT INFORMATION
  Report Type: Report from Study
  Country: US (occurrence: US)
  Receive Date: 20170213
  Receipt Date: 20170213
  Transmission Date: 20170428
  Serious: Yes (Hospitalization, Other)
  Sender: FDA-Public Use
  Company Number: US-GILEAD-2017-0257717

PATIENT
  Age: 75 Year
  Sex: Female

DRUGS (5)
  1. AMBRISENTAN [Suspect]
     Active Substance: AMBRISENTAN
     Indication: PULMONARY ARTERIAL HYPERTENSION
     Dosage: 10 MG, QD
     Route: 065
     Dates: start: 20120315
  2. ADEMPAS [Concomitant]
     Active Substance: RIOCIGUAT
  3. GABAPENTIN. [Concomitant]
     Active Substance: GABAPENTIN
  4. CARVEDILOL. [Concomitant]
     Active Substance: CARVEDILOL
  5. GLIPIZIDE. [Concomitant]
     Active Substance: GLIPIZIDE

REACTIONS (3)
  - Small intestinal obstruction [Recovered/Resolved]
  - Drug dose omission [Recovered/Resolved]
  - Dysphagia [Unknown]
